FAERS Safety Report 4783963-4 (Version None)
Quarter: 2005Q3

REPORT INFORMATION
  Report Type: 
  Country: None (occurrence: None)
  Receive Date: 20050927
  Receipt Date: 20050803
  Transmission Date: 20060218
  Serious: No
  Sender: FDA-Public Use
  Company Number: USA0508104452

PATIENT
  Sex: Male

DRUGS (3)
  1. STRATTERA [Suspect]
     Dosage: 60 MG
  2. LISINOPRIL [Concomitant]
  3. ZANTAC [Concomitant]

REACTIONS (1)
  - DRUG SCREEN POSITIVE [None]
